FAERS Safety Report 5170809-8 (Version None)
Quarter: 2006Q4

REPORT INFORMATION
  Report Type: 
  Country: None (occurrence: None)
  Receive Date: 20061206
  Receipt Date: 20061206
  Transmission Date: 20070319
  Serious: Yes (Hospitalization)
  Sender: FDA-Public Use
  Company Number: None

PATIENT
  Age: 85 Year
  Sex: Male
  Weight: 53 kg

DRUGS (21)
  1. CYCLOPHOSPHAMIDE [Suspect]
     Indication: NON-SMALL CELL LUNG CANCER STAGE IV
     Dosage: 465 MG IV TIMES ONE
     Route: 042
     Dates: start: 20061106
  2. ALLOGENIC LUNG CA/CD4 0L VACCINE - SEE APPENDIX 1 [Suspect]
     Indication: METASTASES TO LIVER
     Dosage: CM.CD40L 15X10E6
     Route: 023
  3. ALLOGENIC LUNG CA/CD4 0L VACCINE [Suspect]
     Indication: METASTASES TO LIVER
     Dosage: H2122 7.5X10E6
  4. ALLOGENIC LUNG CA/CD4 0L VACCINE [Suspect]
     Indication: METASTASES TO LIVER
     Dosage: H1944 7.5X10E6
  5. ALL-TRANS RETINOIC ACID (ATRA) [Suspect]
     Indication: METASTASES TO LIVER
     Dosage: 230 MG PER DAY-70 MG AM DOSE;80 MG MID-DAY;80 MG PM DOSE
     Dates: start: 20061110
  6. ALL-TRANS RETINOIC ACID (ATRA) [Suspect]
     Indication: NON-SMALL CELL LUNG CANCER STAGE IV
     Dosage: 230 MG PER DAY-70 MG AM DOSE;80 MG MID-DAY;80 MG PM DOSE
     Dates: start: 20061110
  7. ALL-TRANS RETINOIC ACID (ATRA) [Suspect]
     Indication: METASTASES TO LIVER
     Dosage: 230 MG PER DAY-70 MG AM DOSE;80 MG MID-DAY;80 MG PM DOSE
     Dates: start: 20061111
  8. ALL-TRANS RETINOIC ACID (ATRA) [Suspect]
     Indication: NON-SMALL CELL LUNG CANCER STAGE IV
     Dosage: 230 MG PER DAY-70 MG AM DOSE;80 MG MID-DAY;80 MG PM DOSE
     Dates: start: 20061111
  9. ALL-TRANS RETINOIC ACID (ATRA) [Suspect]
     Indication: METASTASES TO LIVER
     Dosage: 230 MG PER DAY-70 MG AM DOSE;80 MG MID-DAY;80 MG PM DOSE
     Dates: start: 20061112
  10. ALL-TRANS RETINOIC ACID (ATRA) [Suspect]
     Indication: NON-SMALL CELL LUNG CANCER STAGE IV
     Dosage: 230 MG PER DAY-70 MG AM DOSE;80 MG MID-DAY;80 MG PM DOSE
     Dates: start: 20061112
  11. ASPIRIN [Concomitant]
  12. AVODART [Concomitant]
  13. BENICAR [Concomitant]
  14. DIOVAN [Concomitant]
  15. FLOMAX [Concomitant]
  16. MEGACE [Concomitant]
  17. NEXIUM [Concomitant]
  18. NORVASC [Concomitant]
  19. OXYCONTIN [Concomitant]
  20. VICODIN [Concomitant]
  21. ZOCOR [Concomitant]

REACTIONS (26)
  - ABASIA [None]
  - ASTHENIA [None]
  - ATRIOVENTRICULAR BLOCK FIRST DEGREE [None]
  - BLOOD CALCIUM DECREASED [None]
  - BLOOD CREATININE INCREASED [None]
  - BLOOD POTASSIUM DECREASED [None]
  - BODY TEMPERATURE DECREASED [None]
  - CONDITION AGGRAVATED [None]
  - CYTOKINE RELEASE SYNDROME [None]
  - DEHYDRATION [None]
  - DRUG HYPERSENSITIVITY [None]
  - DYSPNOEA [None]
  - FATIGUE [None]
  - HAEMOGLOBIN DECREASED [None]
  - HYPOTENSION [None]
  - IDIOSYNCRATIC DRUG REACTION [None]
  - OXYGEN SATURATION DECREASED [None]
  - PLEURAL INFECTION [None]
  - PNEUMONIA [None]
  - PO2 DECREASED [None]
  - RECALL PHENOMENON [None]
  - RENAL FAILURE [None]
  - RESPIRATORY RATE INCREASED [None]
  - RETINOIC ACID SYNDROME [None]
  - SEPSIS SYNDROME [None]
  - SINUS TACHYCARDIA [None]
